FAERS Safety Report 18263178 (Version 4)
Quarter: 2020Q4

REPORT INFORMATION
  Report Type: Spontaneous
  Country: IT (occurrence: IT)
  Receive Date: 20200914
  Receipt Date: 20201019
  Transmission Date: 20210113
  Serious: Yes (Death, Other)
  Sender: FDA-Public Use
  Company Number: IT-MYLANLABS-2020M1076718

PATIENT
  Age: 51 Year
  Sex: Male

DRUGS (8)
  1. CARBOPLATIN. [Concomitant]
     Active Substance: CARBOPLATIN
     Indication: SALIVARY GLAND CANCER
     Dosage: AREA UNDER CURVE 2
     Route: 065
  2. TRASTUZUMAB. [Suspect]
     Active Substance: TRASTUZUMAB
     Indication: SALIVARY GLAND CANCER
     Dosage: (QW, LOADING DOSE 4 MG/KG) RECEIVED AS LOADING DOSE UNDER FOURTH-LINE CT, 2 CYCLES
     Route: 065
  3. PACLITAXEL. [Concomitant]
     Active Substance: PACLITAXEL
     Indication: SALIVARY GLAND CANCER
     Dosage: 80 MILLIGRAM/SQ. METER, QWK
     Route: 065
  4. VINORELBINE [Concomitant]
     Active Substance: VINORELBINE TARTRATE
     Indication: SALIVARY GLAND CANCER
     Dosage: 25 MG/M2, DAYS 1 AND 8 OF A 21-DAY CYCLE, RECEIVED ON DAYS 1 AND 8 OF A 21-DAY CYCLE
     Route: 065
  5. TRASTUZUMAB. [Suspect]
     Active Substance: TRASTUZUMAB
     Dosage: 2 MILLIGRAM/KILOGRAM, QW, MAINTENANCE DOSE, RECEIVED UNDER FOURTH-LINE CT, 2 CYCLES
     Route: 065
  6. LEUPRORELIN ACETATE [Suspect]
     Active Substance: LEUPROLIDE ACETATE
     Indication: SALIVARY GLAND CANCER
     Dosage: 3.75 MILLIGRAM, MONTHLY
     Route: 065
  7. TRASTUZUMAB. [Suspect]
     Active Substance: TRASTUZUMAB
     Dosage: 6 MG/KG, 3 WEEKLY, RECEIVED 3 WEEKLY
     Route: 065
  8. TRASTUZUMAB. [Suspect]
     Active Substance: TRASTUZUMAB
     Dosage: 6 MG/KG, 3 WEEKLY
     Route: 065

REACTIONS (15)
  - General physical health deterioration [Fatal]
  - Off label use [Unknown]
  - Pneumonia [Recovered/Resolved]
  - Febrile neutropenia [Unknown]
  - Asthenia [Unknown]
  - Streptococcal endocarditis [Unknown]
  - Intentional product use issue [Unknown]
  - Therapy partial responder [Unknown]
  - Product use in unapproved indication [Unknown]
  - Central nervous system lesion [Unknown]
  - Anaemia [Unknown]
  - Headache [Unknown]
  - Epilepsy [Unknown]
  - Cardiac dysfunction [Unknown]
  - Ejection fraction decreased [Unknown]

NARRATIVE: CASE EVENT DATE: 201912
